FAERS Safety Report 4302858-3 (Version None)
Quarter: 2004Q1

REPORT INFORMATION
  Report Type: 
  Country: None (occurrence: None)
  Receive Date: 20040224
  Receipt Date: 20030422
  Transmission Date: 20041129
  Serious: No
  Sender: FDA-Public Use
  Company Number: US-BRISTOL-MYERS SQUIBB COMPANY-12248324

PATIENT
  Age: 43 Year
  Sex: Female
  Weight: 63 kg

DRUGS (2)
  1. LYSODREN [Suspect]
     Indication: ADRENAL CARCINOMA
     Dosage: PATIENT ADMITS TO TAKING ONLY 9 OF THE PRESCRIBED 16 TABLETS DAILY (6 TABS AM, 3 TABS PM).
     Route: 048
     Dates: end: 20030420
  2. HORMONES [Concomitant]
     Indication: AMENORRHOEA
     Dates: start: 20030301

REACTIONS (6)
  - DIARRHOEA [None]
  - DYSPEPSIA [None]
  - HICCUPS [None]
  - NAUSEA [None]
  - ORAL MUCOSAL BLISTERING [None]
  - SWELLING FACE [None]
